FAERS Safety Report 12657953 (Version 4)
Quarter: 2016Q3

REPORT INFORMATION
  Report Type: Report from Study
  Country: CA (occurrence: CA)
  Receive Date: 20160816
  Receipt Date: 20160916
  Transmission Date: 20161109
  Serious: Yes (Death, Hospitalization)
  Sender: FDA-Public Use
  Company Number: CA-HLSUS-2016-CA-000366

PATIENT
  Age: 71 Year
  Sex: Female

DRUGS (1)
  1. CLOZARIL [Suspect]
     Active Substance: CLOZAPINE
     Route: 048
     Dates: start: 20140912, end: 20160915

REACTIONS (9)
  - Death [Fatal]
  - Malnutrition [Unknown]
  - Red blood cell count decreased [Unknown]
  - Weight decreased [Unknown]
  - White blood cell count decreased [Unknown]
  - Haematocrit decreased [Unknown]
  - Anaemia [Unknown]
  - Off label use [None]
  - Eating disorder [Unknown]

NARRATIVE: CASE EVENT DATE: 20160816
